FAERS Safety Report 6994157-6 (Version None)
Quarter: 2010Q3

REPORT INFORMATION
  Report Type: 
  Country: None (occurrence: None)
  Receive Date: 20100917
  Receipt Date: 20100305
  Transmission Date: 20110219
  Serious: No
  Sender: FDA-Public Use
  Company Number: US-ASTRAZENECA-2010SE09699

PATIENT
  Sex: Male

DRUGS (5)
  1. SEROQUEL XR [Suspect]
     Route: 048
     Dates: start: 20100101, end: 20100101
  2. SEROQUEL XR [Suspect]
     Route: 048
  3. PERCOCET [Concomitant]
  4. KLONOPIN [Concomitant]
  5. XANAX [Concomitant]

REACTIONS (2)
  - FATIGUE [None]
  - SOMNOLENCE [None]
